FAERS Safety Report 24587083 (Version 1)
Quarter: 2024Q4

REPORT INFORMATION
  Report Type: Report from Study
  Country: US (occurrence: US)
  Receive Date: 20241107
  Receipt Date: 20241107
  Transmission Date: 20250115
  Serious: Yes (Other)
  Sender: ACADIA PHARMACEUTICALS
  Company Number: US-ACADIA PHARMACEUTICALS INC.-ACA-2024-PIM-006925

PATIENT
  Sex: Female

DRUGS (5)
  1. NUPLAZID [Suspect]
     Active Substance: PIMAVANSERIN TARTRATE
     Dosage: 34 MILLIGRAM
     Route: 065
  2. CLOZAPINE [Concomitant]
     Active Substance: CLOZAPINE
     Indication: Hallucination
  3. CLOZAPINE [Concomitant]
     Active Substance: CLOZAPINE
     Indication: Psychotic disorder
  4. SEROQUEL [Concomitant]
     Active Substance: QUETIAPINE FUMARATE
     Indication: Hallucination
  5. SEROQUEL [Concomitant]
     Active Substance: QUETIAPINE FUMARATE
     Indication: Psychotic disorder

REACTIONS (3)
  - Hallucination [Unknown]
  - Psychotic disorder [Unknown]
  - Drug ineffective [Unknown]
